FAERS Safety Report 19845261 (Version 1)
Quarter: 2021Q3

REPORT INFORMATION
  Report Type: Spontaneous
  Country: US (occurrence: US)
  Receive Date: 20210917
  Receipt Date: 20210917
  Transmission Date: 20211014
  Serious: Yes (Life-Threatening, Hospitalization, Other)
  Sender: FDA-Public Use
  Company Number: US-B.I. PHARMACEUTICALS,INC./RIDGEFIELD-2021-BI-126406

PATIENT
  Sex: Female

DRUGS (2)
  1. SPIRIVA [Suspect]
     Active Substance: TIOTROPIUM BROMIDE MONOHYDRATE
     Indication: CHRONIC OBSTRUCTIVE PULMONARY DISEASE
     Dosage: 2 PUFFS DAILY
  2. CLARITINE [Concomitant]
     Active Substance: LORATADINE
     Indication: MULTIPLE ALLERGIES
     Dosage: 10MG PO QD
     Route: 048

REACTIONS (7)
  - Mechanical ventilation [Unknown]
  - Myocardial infarction [Unknown]
  - Coronary artery occlusion [Unknown]
  - Dyspnoea [Unknown]
  - Oropharyngeal pain [Recovering/Resolving]
  - Pneumonia [Unknown]
  - Loss of consciousness [Unknown]
